FAERS Safety Report 9037826 (Version 4)
Quarter: 2013Q4

REPORT INFORMATION
  Report Type: Spontaneous
  Country: GB (occurrence: GB)
  Receive Date: 20130129
  Receipt Date: 20131024
  Transmission Date: 20140711
  Serious: Yes (Other)
  Sender: FDA-Public Use
  Company Number: GB-BRISTOL-MYERS SQUIBB COMPANY-17312836

PATIENT
  Age: 70 Year
  Sex: Female

DRUGS (6)
  1. METFORMIN HCL [Suspect]
     Indication: TYPE 2 DIABETES MELLITUS
     Route: 048
     Dates: end: 20121217
  2. ALENDRONATE [Concomitant]
  3. ATORVASTATIN [Concomitant]
  4. LATANOPROST [Concomitant]
  5. PANTOPRAZOLE [Concomitant]
  6. PIOGLITAZONE HCL [Concomitant]

REACTIONS (4)
  - Vision blurred [Recovered/Resolved]
  - Visual acuity reduced [Recovered/Resolved]
  - Headache [Recovered/Resolved]
  - Blindness transient [Recovered/Resolved]
